FAERS Safety Report 13298187 (Version 1)
Quarter: 2017Q1

REPORT INFORMATION
  Report Type: Report from Study
  Country: US (occurrence: US)
  Receive Date: 20170306
  Receipt Date: 20170306
  Transmission Date: 20170428
  Serious: Yes (Other)
  Sender: FDA-Public Use
  Company Number: US-PFIZER INC-2017080388

PATIENT

DRUGS (4)
  1. DOCETAXEL. [Interacting]
     Active Substance: DOCETAXEL
     Indication: NEOPLASM MALIGNANT
     Dosage: 45 MG/M2, CYCLIC (EVERY 21 DAYS) (60MIN INFUSION ON DAY 10, REGIMEN 2)
     Route: 042
  2. IMATINIB [Interacting]
     Active Substance: IMATINIB
     Indication: NEOPLASM MALIGNANT
     Dosage: 400 MG, CYCLIC (EVERY 21 DAYS) ON DAYS 1-5, 8-12 (INCLUDED DAYS 15-19, REGIMEN 2)
     Route: 048
  3. DEXAMETHASONE. [Concomitant]
     Active Substance: DEXAMETHASONE
     Indication: PREMEDICATION
     Dosage: 8 MG TWICE DAILY, CYCLIC
     Route: 048
  4. GEMCITABINE HYDROCHLORIDE. [Suspect]
     Active Substance: GEMCITABINE HYDROCHLORIDE
     Indication: NEOPLASM MALIGNANT
     Dosage: 600 MG/M2, CYCLIC (EVERY 21 DAYS) (10 MG/M2/MIN ON DAYS 3, 10, REGIMEN 2)

REACTIONS (2)
  - Drug interaction [Unknown]
  - Febrile neutropenia [Unknown]
